FAERS Safety Report 6543067-7 (Version None)
Quarter: 2010Q1

REPORT INFORMATION
  Report Type: 
  Country: None (occurrence: None)
  Receive Date: 20100120
  Receipt Date: 20100106
  Transmission Date: 20100710
  Serious: Yes (Death, Congenital Anomaly, Other)
  Sender: FDA-Public Use
  Company Number: PHHY2010US01993

PATIENT

DRUGS (3)
  1. TEGRETOL [Suspect]
     Indication: EPILEPSY
     Dosage: MATERNAL DOSE 1000 MG
     Route: 064
  2. DILANTIN [Suspect]
     Indication: EPILEPSY
     Dosage: MATERNAL DOSE 500 MG
     Route: 064
  3. TOPAMAX [Suspect]
     Indication: EPILEPSY
     Dosage: MATERNAL DOSE 400 MG
     Route: 064

REACTIONS (7)
  - ABORTION INDUCED [None]
  - BRAIN MALFORMATION [None]
  - DRUG EXPOSURE DURING PREGNANCY [None]
  - FOETAL GROWTH RETARDATION [None]
  - HEART DISEASE CONGENITAL [None]
  - PULMONARY MALFORMATION [None]
  - SYNDACTYLY [None]
